FAERS Safety Report 9145942 (Version 1)
Quarter: 2013Q1

REPORT INFORMATION
  Report Type: Spontaneous
  Country: US (occurrence: None)
  Receive Date: 20130227
  Receipt Date: 20130227
  Transmission Date: 20140127
  Serious: No
  Sender: FDA-Public Use
  Company Number: None

PATIENT
  Sex: Male

DRUGS (2)
  1. XELODA [Suspect]
     Indication: PANCREATIC CARCINOMA
     Dosage: 500MG PO 2 BID ON WEEKDAYS ONLY
     Route: 048
     Dates: start: 20130104, end: 20130225
  2. XELODA [Suspect]
     Dosage: 150 MG PO 2BID ON WEEKDAYS ONLY
     Route: 048

REACTIONS (2)
  - Blister [None]
  - Gait disturbance [None]
